FAERS Safety Report 6249213-7 (Version None)
Quarter: 2009Q2

REPORT INFORMATION
  Report Type: 
  Country: None (occurrence: None)
  Receive Date: 20090624
  Receipt Date: 20090624
  Transmission Date: 20091009
  Serious: Yes (Other)
  Sender: FDA-Public Use
  Company Number: None

PATIENT
  Sex: Female
  Weight: 59.8748 kg

DRUGS (1)
  1. CLINDAMYCIN HCL [Suspect]
     Indication: TOOTH ABSCESS
     Dosage: TAKE 2 TO BEGIN, THEN 1 EVERY 6 HOURS DENTAL
     Route: 004
     Dates: start: 20090610, end: 20090619

REACTIONS (1)
  - RASH [None]
